FAERS Safety Report 21018348 (Version 1)
Quarter: 2022Q2

REPORT INFORMATION
  Report Type: Spontaneous
  Country: US (occurrence: None)
  Receive Date: 20220628
  Receipt Date: 20220628
  Transmission Date: 20220721
  Serious: Yes (Hospitalization)
  Sender: FDA-Public Use
  Company Number: None

PATIENT
  Age: 86 Year
  Sex: Female
  Weight: 62.55 kg

DRUGS (1)
  1. INJECTAFER [Suspect]
     Active Substance: FERRIC CARBOXYMALTOSE
     Indication: Iron deficiency anaemia
     Dosage: OTHER FREQUENCY : DAY 1 AND DAY 7;?
     Route: 041
     Dates: start: 20220606, end: 20220606

REACTIONS (5)
  - Loss of consciousness [None]
  - Cardio-respiratory arrest [None]
  - Infusion related reaction [None]
  - Dry mouth [None]
  - Blood pressure increased [None]

NARRATIVE: CASE EVENT DATE: 20220606
